FAERS Safety Report 7527169 (Version 3)
Quarter: 2013Q4

REPORT INFORMATION
  Report Type: Spontaneous
  Country: BR (occurrence: BR)
  Receive Date: 20100804
  Receipt Date: 20131018
  Transmission Date: 20140711
  Serious: Yes (Other)
  Sender: FDA-Public Use
  Company Number: BR-PFIZER INC-2009296558

PATIENT
  Age: 35 Year
  Sex: Male
  Weight: 104 kg

DRUGS (11)
  1. GEODON [Suspect]
     Indication: SCHIZOPHRENIA
     Dosage: 40 MG, 2X/DAY, EVERY 12 HOURS
     Route: 048
     Dates: start: 2008
  2. GEODON [Suspect]
     Dosage: 80 MG, 2X/DAY
     Route: 048
  3. ZIPRASIDONE HCL [Suspect]
     Dosage: UNK
     Dates: start: 2007, end: 2011
  4. LITHIUM CARBONATE [Suspect]
     Indication: MANIA
     Dosage: 900 MG, UNK
     Dates: start: 201004
  5. CARBAMAZEPINE [Concomitant]
     Dosage: 400 MG, 2X/DAY (EVERY 12 HOURS)
     Route: 048
     Dates: start: 2003
  6. NEOZINE [Concomitant]
     Indication: INSOMNIA
     Dosage: 50 MG, UNK
     Dates: start: 2007
  7. AMPLICTIL [Concomitant]
     Dosage: 50 MG (25 MG AT 2 TABLETS), 1X/DAY
     Route: 048
     Dates: start: 2009
  8. RIVOTRIL [Concomitant]
     Dosage: UNK
     Dates: start: 200311
  9. PAROXETINE [Concomitant]
     Dosage: UNK
  10. AKINETON RETARD [Concomitant]
     Indication: PARKINSON^S DISEASE
     Dosage: 4 MG, UNK
     Dates: start: 201001
  11. SERTRALINE [Concomitant]
     Indication: DEPRESSION
     Dosage: 50 MG, UNK

REACTIONS (13)
  - Psychotic disorder [Unknown]
  - Depression [Unknown]
  - Persecutory delusion [Not Recovered/Not Resolved]
  - Hallucination [Not Recovered/Not Resolved]
  - Aggression [Recovered/Resolved]
  - Drug level decreased [Recovered/Resolved]
  - Decreased interest [Not Recovered/Not Resolved]
  - Mood altered [Recovered/Resolved]
  - Weight decreased [Unknown]
  - Neck pain [Not Recovered/Not Resolved]
  - Weight increased [Unknown]
  - Feeling abnormal [Unknown]
  - Hepatic enzyme abnormal [Unknown]
